FAERS Safety Report 8041906-4 (Version None)
Quarter: 2012Q1

REPORT INFORMATION
  Report Type: 
  Country: None (occurrence: None)
  Receive Date: 20120112
  Receipt Date: 20120112
  Transmission Date: 20120608
  Serious: Yes (Other)
  Sender: FDA-Public Use
  Company Number: None

PATIENT
  Age: 55 Year
  Sex: Female
  Weight: 83.914 kg

DRUGS (3)
  1. ONDANSETRON HYDROCHLORIDE [Suspect]
     Indication: NAUSEA
     Dosage: 4 MG
     Route: 048
     Dates: start: 20111216, end: 20120106
  2. DOXYCYCLINE [Concomitant]
     Route: 048
  3. ATENOLOL [Concomitant]
     Route: 048

REACTIONS (7)
  - CONDITION AGGRAVATED [None]
  - PRODUCT SUBSTITUTION ISSUE [None]
  - REGURGITATION [None]
  - DRUG INEFFECTIVE [None]
  - NAUSEA [None]
  - WEIGHT DECREASED [None]
  - IMPAIRED WORK ABILITY [None]
